FAERS Safety Report 6956601-X (Version None)
Quarter: 2010Q3

REPORT INFORMATION
  Report Type: 
  Country: None (occurrence: None)
  Receive Date: 20100830
  Receipt Date: 20100817
  Transmission Date: 20110219
  Serious: Yes (Hospitalization)
  Sender: FDA-Public Use
  Company Number: US-ELI_LILLY_AND_COMPANY-US201008006715

PATIENT
  Sex: Female

DRUGS (9)
  1. FORTEO [Suspect]
     Indication: OSTEOPOROSIS
     Dosage: 20 UG, DAILY (1/D)
     Dates: start: 20100209
  2. NORCO [Concomitant]
     Indication: PAIN
     Dosage: UNK, AS NEEDED
  3. ACULAR [Concomitant]
  4. PREDNISOLONE [Concomitant]
     Dosage: UNK, 2/W
  5. MULTI-VITAMIN [Concomitant]
  6. CALCIUM [Concomitant]
  7. VITAMIN D3 [Concomitant]
  8. ASCORBIC ACID [Concomitant]
  9. LOVAZA [Concomitant]

REACTIONS (1)
  - VERTEBROPLASTY [None]
